FAERS Safety Report 15744961 (Version 1)
Quarter: 2018Q4

REPORT INFORMATION
  Report Type: Spontaneous
  Country: US (occurrence: US)
  Receive Date: 20181220
  Receipt Date: 20181220
  Transmission Date: 20190205
  Serious: Yes (Other)
  Sender: FDA-Public Use
  Company Number: US-JNJFOC-20181200084

PATIENT
  Sex: Male

DRUGS (17)
  1. OXYGEN. [Concomitant]
     Active Substance: OXYGEN
  2. KLOR-CON M20 [Concomitant]
     Active Substance: POTASSIUM CHLORIDE
  3. THERAGRAN [Concomitant]
     Active Substance: VITAMINS
  4. LAC-HYDRIN [Concomitant]
     Active Substance: AMMONIUM LACTATE
  5. ECOTRIN [Concomitant]
     Active Substance: ASPIRIN
  6. LASIX [Concomitant]
     Active Substance: FUROSEMIDE
  7. XARELTO [Concomitant]
     Active Substance: RIVAROXABAN
  8. METOPROLOL SUCCINATE. [Concomitant]
     Active Substance: METOPROLOL SUCCINATE
     Dosage: 24 HRS
  9. CRESTOR [Concomitant]
     Active Substance: ROSUVASTATIN CALCIUM
  10. ALDACTONE [Concomitant]
     Active Substance: SPIRONOLACTONE
  11. AMPICILLIN [Concomitant]
     Active Substance: AMPICILLIN
  12. MAG OXIDE [Concomitant]
     Active Substance: MAGNESIUM OXIDE
  13. COLACE [Concomitant]
     Active Substance: DOCUSATE SODIUM
  14. APRESOLINE HYDROCHLORIDE [Concomitant]
     Active Substance: HYDRALAZINE HYDROCHLORIDE
     Route: 048
  15. BACTROBAN [Concomitant]
     Active Substance: MUPIROCIN\MUPIROCIN CALCIUM
  16. IMBRUVICA [Suspect]
     Active Substance: IBRUTINIB
     Indication: CHRONIC LYMPHOCYTIC LEUKAEMIA
     Route: 065
  17. MYCOSTATIN [Concomitant]
     Active Substance: NYSTATIN

REACTIONS (21)
  - Cellulitis orbital [Unknown]
  - Treatment noncompliance [Unknown]
  - Abscess [Unknown]
  - Impaired healing [Unknown]
  - Acute respiratory failure [Unknown]
  - Ulcer [Unknown]
  - Off label use [Unknown]
  - Product use issue [Unknown]
  - Hypokalaemia [Unknown]
  - Hypertension [Unknown]
  - Obesity [Unknown]
  - Atrial fibrillation [Unknown]
  - Inflammation [Unknown]
  - Cellulitis [Unknown]
  - Chronic kidney disease [Unknown]
  - Iron deficiency anaemia [Unknown]
  - Hypomagnesaemia [Unknown]
  - Hypercapnia [Unknown]
  - Diverticulum [Unknown]
  - Prostate cancer [Unknown]
  - Hypoxia [Unknown]
